FAERS Safety Report 16150275 (Version 7)
Quarter: 2019Q4

REPORT INFORMATION
  Report Type: Report from Study
  Country: US (occurrence: US)
  Receive Date: 20190403
  Receipt Date: 20191218
  Transmission Date: 20200122
  Serious: Yes (Death, Other)
  Sender: FDA-Public Use
  Company Number: PHHY2019US074603

PATIENT
  Age: 43 Year
  Sex: Female

DRUGS (2)
  1. CYCLOPHOSPHAMIDE. [Concomitant]
     Active Substance: CYCLOPHOSPHAMIDE
     Indication: CHEMOTHERAPY
     Route: 065
  2. KYMRIAH [Suspect]
     Active Substance: TISAGENLECLEUCEL
     Indication: DIFFUSE LARGE B-CELL LYMPHOMA
     Dosage: UNK UNK, ONCE/SINGLE
     Route: 041
     Dates: start: 2018

REACTIONS (8)
  - Haemoglobin decreased [Unknown]
  - Diffuse large B-cell lymphoma recurrent [Fatal]
  - Platelet count decreased [Unknown]
  - Cytokine release syndrome [Unknown]
  - Malignant neoplasm progression [Fatal]
  - Haematocrit decreased [Unknown]
  - Lymphocyte count decreased [Unknown]
  - Pyrexia [Unknown]
